FAERS Safety Report 8613534-0 (Version None)
Quarter: 2012Q3

REPORT INFORMATION
  Report Type: 
  Country: None (occurrence: None)
  Receive Date: 20120823
  Receipt Date: 20120808
  Transmission Date: 20120928
  Serious: Yes (Other)
  Sender: FDA-Public Use
  Company Number: JP-009507513-1208JPN004256

PATIENT

DRUGS (9)
  1. REBETOL [Suspect]
     Dosage: 200 MG, QD
     Route: 048
     Dates: start: 20120614
  2. CLARITIN REDITABS TABLETS 10 MG [Concomitant]
     Indication: PROPHYLAXIS
     Dosage: 10 MG, QD
     Route: 048
  3. LIVALO [Concomitant]
     Indication: HYPERLIPIDAEMIA
     Dosage: 2 MG, QD
     Route: 048
  4. REBETOL [Suspect]
     Indication: HEPATITIS C
     Dosage: 600 MG, QD
     Route: 048
     Dates: start: 20120526
  5. EPADEL S [Concomitant]
     Indication: HYPERLIPIDAEMIA
     Dosage: 1800 MG, QD
     Route: 048
  6. FEROTYM [Concomitant]
     Indication: IRON DEFICIENCY ANAEMIA
     Dosage: 100 MG, QD
     Route: 048
  7. PEG-INTRON [Suspect]
     Indication: HEPATITIS C
     Dosage: 1.5 MICROGRAM PER KILOGRAM, QW
     Route: 058
     Dates: start: 20120526
  8. AMLODIPINE TOWA [Concomitant]
     Indication: HYPERTENSION
     Dosage: 5 MG, QD
     Route: 048
  9. TELAVIC [Suspect]
     Indication: HEPATITIS C
     Dosage: 1500 MG, QD
     Route: 048
     Dates: start: 20120526

REACTIONS (1)
  - ANAEMIA [None]
